FAERS Safety Report 4640380-5 (Version None)
Quarter: 2005Q2

REPORT INFORMATION
  Report Type: 
  Country: None (occurrence: None)
  Receive Date: 20050420
  Receipt Date: 20020129
  Transmission Date: 20051028
  Serious: Yes (Life-Threatening, Hospitalization, Disabling)
  Sender: FDA-Public Use
  Company Number: FR-GLAXOSMITHKLINE-B0134566B

PATIENT
  Age: 33 Year
  Sex: Female
  Weight: 70 kg

DRUGS (7)
  1. ASPIRIN [Suspect]
     Indication: BONE PAIN
     Route: 048
  2. GARDENAL [Concomitant]
  3. DEPAKENE [Concomitant]
  4. LAMICTAL [Suspect]
     Indication: EPILEPSY
     Route: 048
     Dates: start: 19990716, end: 20020129
  5. DOLIPRANE [Concomitant]
     Route: 048
     Dates: start: 20000701
  6. AUGMENTIN '125' [Concomitant]
     Dates: start: 20000401
  7. CLAMOXYL [Concomitant]
     Dates: start: 20000801

REACTIONS (19)
  - ACUTE GENERALISED EXANTHEMATOUS PUSTULOSIS [None]
  - ANAEMIA [None]
  - BONE MARROW DEPRESSION [None]
  - BRONCHITIS VIRAL [None]
  - CATHETER RELATED INFECTION [None]
  - DERMATITIS EXFOLIATIVE [None]
  - DRUG HYPERSENSITIVITY [None]
  - DRUG INEFFECTIVE [None]
  - DRUG INTOLERANCE [None]
  - EPILEPSY [None]
  - HAEMOGLOBIN DECREASED [None]
  - INFECTION [None]
  - MENORRHAGIA [None]
  - METRORRHAGIA [None]
  - PALLOR [None]
  - PLATELET COUNT DECREASED [None]
  - TACHYCARDIA [None]
  - TOXIC SKIN ERUPTION [None]
  - WHITE BLOOD CELL COUNT DECREASED [None]
